FAERS Safety Report 8061522-8 (Version None)
Quarter: 2012Q1

REPORT INFORMATION
  Report Type: 
  Country: None (occurrence: None)
  Receive Date: 20120120
  Receipt Date: 20111219
  Transmission Date: 20120608
  Serious: No
  Sender: FDA-Public Use
  Company Number: US-ALLERGAN-1117039US

PATIENT
  Age: 53 Year
  Sex: Female

DRUGS (6)
  1. VESICARE [Suspect]
     Indication: INCONTINENCE
     Dosage: UNK
     Route: 048
     Dates: start: 20100101, end: 20100101
  2. MULTI-VITAMINS [Concomitant]
  3. EVISTA                             /01303202/ [Concomitant]
  4. SINGULAIR [Concomitant]
  5. RESTASIS [Suspect]
     Indication: PRODUCT USED FOR UNKNOWN INDICATION
     Dosage: UNK
     Route: 065
     Dates: start: 20100101, end: 20100101
  6. GABAPENTIN [Concomitant]

REACTIONS (1)
  - VISION BLURRED [None]
